FAERS Safety Report 16735473 (Version 2)
Quarter: 2019Q4

REPORT INFORMATION
  Report Type: Spontaneous
  Country: JP (occurrence: JP)
  Receive Date: 20190823
  Receipt Date: 20191011
  Transmission Date: 20200122
  Serious: Yes (Hospitalization)
  Sender: FDA-Public Use
  Company Number: JP-PFIZER INC-2019355754

PATIENT
  Age: 72 Year
  Sex: Male
  Weight: 58.6 kg

DRUGS (14)
  1. BELSOMRA [Concomitant]
     Active Substance: SUVOREXANT
     Dosage: UNK
     Dates: start: 20190613
  2. CRESTOR OD [Concomitant]
     Active Substance: ROSUVASTATIN CALCIUM
     Dosage: UNK
     Route: 048
  3. LORBRENA [Suspect]
     Active Substance: LORLATINIB
     Indication: LUNG ADENOCARCINOMA
     Dosage: 100 MG, 1X/DAY
     Route: 048
     Dates: start: 20190605, end: 20190613
  4. DENOTAS [Concomitant]
     Active Substance: CALCIUM CARBONATE\CHOLECALCIFEROL\MAGNESIUM CARBONATE
     Route: 048
  5. MAGNESIUM OXIDE. [Concomitant]
     Active Substance: MAGNESIUM OXIDE
     Dosage: UNK
     Route: 048
  6. LORBRENA [Suspect]
     Active Substance: LORLATINIB
     Dosage: 50 MG, 1X/DAY
     Dates: start: 20190618
  7. PREDNISOLONE. [Concomitant]
     Active Substance: PREDNISOLONE
     Dosage: UNK
     Route: 048
  8. LUPRAC [Concomitant]
     Active Substance: TORSEMIDE
     Dosage: UNK
     Route: 048
  9. TAKECAB [Concomitant]
     Active Substance: VONOPRAZAN FUMURATE
     Dosage: UNK
     Route: 048
  10. BAYASPIRIN [Concomitant]
     Active Substance: ASPIRIN
     Route: 048
  11. BAKTAR [Concomitant]
     Active Substance: SULFAMETHOXAZOLE\TRIMETHOPRIM
     Route: 048
  12. PREDNISOLONE. [Concomitant]
     Active Substance: PREDNISOLONE
     Dosage: UNK
     Route: 048
  13. LASIX [Concomitant]
     Active Substance: FUROSEMIDE
     Dosage: UNK
     Route: 048
  14. TRAZODONE [Concomitant]
     Active Substance: TRAZODONE HYDROCHLORIDE
     Dosage: UNK
     Dates: start: 20190613

REACTIONS (3)
  - Nervous system disorder [Unknown]
  - Hallucination, auditory [Unknown]
  - Hallucination [Unknown]

NARRATIVE: CASE EVENT DATE: 20190609
